FAERS Safety Report 5779046-7 (Version None)
Quarter: 2008Q2

REPORT INFORMATION
  Report Type: 
  Country: None (occurrence: None)
  Receive Date: 20080617
  Receipt Date: 20080604
  Transmission Date: 20081010
  Serious: Yes (Other)
  Sender: FDA-Public Use
  Company Number: 234879J08USA

PATIENT
  Age: 48 Year
  Sex: Female
  Weight: 61.2356 kg

DRUGS (3)
  1. REBIF [Suspect]
     Indication: MULTIPLE SCLEROSIS
     Dosage: 44 MCG, 3 IN 1 WEEKS, SUBCUTANEOUS
     Route: 058
     Dates: start: 20051215, end: 20080520
  2. PERCOCET [Concomitant]
  3. GABAPENTIN [Concomitant]

REACTIONS (7)
  - DRUG INEFFECTIVE [None]
  - ERYTHEMA [None]
  - METASTASES TO LIVER [None]
  - METASTASES TO LUNG [None]
  - NEURALGIA [None]
  - SARCOMA [None]
  - SKIN STRIAE [None]
